FAERS Safety Report 6802696-3 (Version None)
Quarter: 2010Q2

REPORT INFORMATION
  Report Type: 
  Country: None (occurrence: None)
  Receive Date: 20100628
  Receipt Date: 20100618
  Transmission Date: 20101027
  Serious: Yes (Other)
  Sender: FDA-Public Use
  Company Number: AU-MILLENNIUM PHARMACEUTICALS, INC.-2010-03089

PATIENT

DRUGS (1)
  1. VELCADE [Suspect]
     Dosage: UNK

REACTIONS (1)
  - ACCIDENTAL EXPOSURE [None]
